FAERS Safety Report 4773254-X (Version None)
Quarter: 2005Q3

REPORT INFORMATION
  Report Type: 
  Country: None (occurrence: None)
  Receive Date: 20050916
  Receipt Date: 20050906
  Transmission Date: 20060218
  Serious: Yes (Hospitalization)
  Sender: FDA-Public Use
  Company Number: B0392863A

PATIENT
  Age: 24 Year
  Sex: Male

DRUGS (3)
  1. EPIVIR              (FORMULATON UNKNOWN) (LAMIVUDINE) [Suspect]
     Indication: HIV INFECTION
  2. STAVUDINE [Suspect]
     Indication: HIV INFECTION
  3. INDINAVIR SULFATE (FORMULATION UNKNOWN) (INDINAVIR SULFATE) [Suspect]
     Indication: HIV INFECTION

REACTIONS (4)
  - ANXIETY [None]
  - BASEDOW'S DISEASE [None]
  - HYPERTENSION [None]
  - IMMUNE RECONSTITUTION SYNDROME [None]
